FAERS Safety Report 17194566 (Version 2)
Quarter: 2020Q1

REPORT INFORMATION
  Report Type: Spontaneous
  Country: JP (occurrence: JP)
  Receive Date: 20191224
  Receipt Date: 20200226
  Transmission Date: 20200409
  Serious: Yes (Other)
  Sender: FDA-Public Use
  Company Number: JP-ASTRAZENECA-2019SF85061

PATIENT
  Age: 64 Year
  Sex: Male
  Weight: 67 kg

DRUGS (3)
  1. IMFINZI [Suspect]
     Active Substance: DURVALUMAB
     Indication: NON-SMALL CELL LUNG CANCER
     Route: 042
     Dates: start: 20190617, end: 20190716
  2. IMFINZI [Suspect]
     Active Substance: DURVALUMAB
     Indication: NON-SMALL CELL LUNG CANCER
     Dosage: 3RD COURSE
     Route: 042
     Dates: start: 20190716
  3. IMFINZI [Suspect]
     Active Substance: DURVALUMAB
     Indication: NON-SMALL CELL LUNG CANCER
     Dosage: THE 2ND COURSE OF IMFINZI
     Route: 042
     Dates: start: 20190701

REACTIONS (1)
  - Pancreatic carcinoma [Unknown]
